FAERS Safety Report 5677921-5 (Version None)
Quarter: 2008Q1

REPORT INFORMATION
  Report Type: 
  Country: None (occurrence: None)
  Receive Date: 20080325
  Receipt Date: 20080312
  Transmission Date: 20080703
  Serious: Yes (Other)
  Sender: FDA-Public Use
  Company Number: NL-RANBAXY-2008RR-13702

PATIENT

DRUGS (7)
  1. ACETAMINOPHEN [Suspect]
     Indication: PYREXIA
  2. VALPROATE SODIUM [Suspect]
     Indication: MYOCLONIC EPILEPSY
     Dosage: 51 MG/KG, QD
  3. TOPIRAMATE [Suspect]
     Dosage: 10 MG/KG, QD
  4. LAMOTRIGINE [Concomitant]
     Dosage: 1.0 MG/KG, QD
  5. CLONAZEPAM [Concomitant]
     Dosage: 0.1 MG/KG, QD
  6. LEVOCARNITINE [Concomitant]
     Dosage: 60 MG/KG, QD
  7. LACTULOSE [Concomitant]

REACTIONS (2)
  - DRUG INTERACTION [None]
  - LIVER INJURY [None]
